FAERS Safety Report 10901935 (Version 1)
Quarter: 2015Q1

REPORT INFORMATION
  Report Type: Spontaneous
  Country: US (occurrence: US)
  Receive Date: 20150310
  Receipt Date: 20150310
  Transmission Date: 20150721
  Serious: No
  Sender: FDA-Public Use
  Company Number: US-GLAXOSMITHKLINE-US2015020236

PATIENT
  Sex: Male

DRUGS (2)
  1. DILANTIN [Concomitant]
     Active Substance: PHENYTOIN
  2. FLONASE [Suspect]
     Active Substance: FLUTICASONE PROPIONATE
     Indication: NASAL INFLAMMATION
     Dosage: UNK

REACTIONS (3)
  - Eye pain [Recovered/Resolved]
  - Pain [Recovered/Resolved]
  - Headache [Recovered/Resolved]
